FAERS Safety Report 18968133 (Version 3)
Quarter: 2021Q3

REPORT INFORMATION
  Report Type: Spontaneous
  Country: JP (occurrence: JP)
  Receive Date: 20210304
  Receipt Date: 20210813
  Transmission Date: 20211014
  Serious: Yes (Other)
  Sender: FDA-Public Use
  Company Number: JP-GLAXOSMITHKLINE-JP2020260858

PATIENT
  Age: 57 Year
  Sex: Female
  Weight: 53.1 kg

DRUGS (7)
  1. ZEJULA [Suspect]
     Active Substance: NIRAPARIB
     Indication: OVARIAN CANCER STAGE IV
     Dosage: 200 MILLIGRAM, QD
     Route: 048
     Dates: start: 20201126, end: 20201222
  2. DOMPERIDONE [Concomitant]
     Active Substance: DOMPERIDONE
     Indication: PROPHYLAXIS OF NAUSEA AND VOMITING
     Dosage: 10 MILLIGRAM, TID
     Route: 048
     Dates: start: 20201124, end: 20201207
  3. DENOTAS [Concomitant]
     Active Substance: CALCIUM CARBONATE\CHOLECALCIFEROL\MAGNESIUM CARBONATE
     Indication: PROPHYLAXIS
     Dosage: 2 DOSAGE FORM, QD
     Route: 048
     Dates: start: 20180423
  4. MIYA?BM [Concomitant]
     Active Substance: CLOSTRIDIUM BUTYRICUM SPORES STRAIN M-55
     Indication: GASTROINTESTINAL DISORDER
     Dosage: 3 DOSAGE FORM, TID
     Route: 048
     Dates: start: 20180423
  5. RANMARK [Concomitant]
     Active Substance: DENOSUMAB
     Indication: PATHOLOGICAL FRACTURE PROPHYLAXIS
     Dosage: 120 MILLIGRAM, Q4WEEKS
     Route: 058
     Dates: start: 20180423
  6. ZEJULA [Suspect]
     Active Substance: NIRAPARIB
     Dosage: 200 MILLIGRAM, QD
     Route: 048
     Dates: start: 20210107, end: 20210202
  7. NASEA [Concomitant]
     Active Substance: RAMOSETRON HYDROCHLORIDE
     Indication: PROPHYLAXIS OF NAUSEA AND VOMITING
     Dosage: 0.1 MILLIGRAM
     Route: 048
     Dates: start: 20201124

REACTIONS (8)
  - Ovarian cancer [Unknown]
  - Platelet count decreased [Recovered/Resolved]
  - Nausea [Recovered/Resolved]
  - White blood cell count decreased [Recovered/Resolved]
  - Neutrophil count decreased [Recovered/Resolved]
  - White blood cell count decreased [Recovered/Resolved]
  - Condition aggravated [Unknown]
  - Platelet count decreased [Recovered/Resolved]

NARRATIVE: CASE EVENT DATE: 20201222
